FAERS Safety Report 10098830 (Version 1)
Quarter: 2014Q2

REPORT INFORMATION
  Report Type: Spontaneous
  Country: US (occurrence: None)
  Receive Date: 20140422
  Receipt Date: 20140422
  Transmission Date: 20141212
  Serious: Yes (Hospitalization, Disabling)
  Sender: FDA-Public Use
  Company Number: None

PATIENT
  Age: 40 Year
  Sex: Male
  Weight: 85.28 kg

DRUGS (5)
  1. SMZ/TMP [Suspect]
     Indication: BACTERIAL INFECTION
     Dosage: 2 PILLS DAILY BY MOUTH
     Route: 048
     Dates: start: 20140320, end: 20140402
  2. IBUPROFEN [Concomitant]
  3. DEPAKOTE [Concomitant]
  4. SEROQUEL [Concomitant]
  5. TRAZODONE [Concomitant]

REACTIONS (8)
  - Migraine [None]
  - Chills [None]
  - Pyrexia [None]
  - Nausea [None]
  - Faeces discoloured [None]
  - Pollakiuria [None]
  - Muscle spasms [None]
  - Rash generalised [None]
